FAERS Safety Report 14583612 (Version 2)
Quarter: 2018Q2

REPORT INFORMATION
  Report Type: Spontaneous
  Country: JP (occurrence: JP)
  Receive Date: 20180228
  Receipt Date: 20180522
  Transmission Date: 20180711
  Serious: Yes (Hospitalization, Other)
  Sender: FDA-Public Use
  Company Number: JP-PFIZER INC-2018077671

PATIENT
  Age: 60 Year
  Sex: Female
  Weight: 69 kg

DRUGS (5)
  1. TRAZENTA [Concomitant]
     Active Substance: LINAGLIPTIN
     Dosage: 5 MG, 1X/DAY (AFTER BREAKFAST)
     Route: 048
  2. AZILVA [Concomitant]
     Active Substance: AZILSARTAN KAMEDOXOMIL
     Dosage: 10 MG, 1X/DAY (AFTER BREAKFAST)
     Route: 048
  3. BESOFTEN [Concomitant]
     Active Substance: PENTOSAN POLYSULFATE SODIUM
     Dosage: A FEW TIMES DAILY
     Route: 061
     Dates: start: 20180112
  4. DEBERZA [Concomitant]
     Active Substance: TOFOGLIFLOZIN
     Dosage: 20 MG, 1X/DAY (AFTER BREAKFAST)
     Route: 048
  5. SUTENT [Suspect]
     Active Substance: SUNITINIB MALATE
     Indication: METASTATIC RENAL CELL CARCINOMA
     Dosage: 37.5 MG CYCLIC (ONCE DAILY AFTER BREAKFAST CYCLIC (2-WEEK-ON, 1-WEEK-OFF SCHEDULE))
     Route: 048
     Dates: start: 20180112, end: 20180125

REACTIONS (2)
  - Febrile neutropenia [Recovering/Resolving]
  - Thrombocytopenia [Recovering/Resolving]

NARRATIVE: CASE EVENT DATE: 20180125
